FAERS Safety Report 9565468 (Version 1)
Quarter: 2013Q3

REPORT INFORMATION
  Report Type: Spontaneous
  Country: US (occurrence: US)
  Receive Date: 20130930
  Receipt Date: 20130930
  Transmission Date: 20140515
  Serious: No
  Sender: FDA-Public Use
  Company Number: US-BAYER-2013-116987

PATIENT
  Age: 22 Year
  Sex: Female

DRUGS (1)
  1. NATAZIA [Suspect]
     Indication: MENORRHAGIA
     Dosage: 1 PILL
     Route: 048
     Dates: start: 201305

REACTIONS (1)
  - Drug administration error [None]
